FAERS Safety Report 12800791 (Version 1)
Quarter: 2016Q4

REPORT INFORMATION
  Report Type: Spontaneous
  Country: US (occurrence: US)
  Receive Date: 20161002
  Receipt Date: 20161002
  Transmission Date: 20170207
  Serious: No
  Sender: FDA-Public Use
  Company Number: US-ASTRAZENECA-2016SF04132

PATIENT
  Sex: Female
  Weight: 63.5 kg

DRUGS (2)
  1. OMEPRAZOLE. [Suspect]
     Active Substance: OMEPRAZOLE
     Indication: GASTROOESOPHAGEAL REFLUX DISEASE
     Route: 048
  2. METOPROLOL TARTATE [Suspect]
     Active Substance: METOPROLOL TARTRATE
     Indication: EXTRASYSTOLES
     Route: 048

REACTIONS (3)
  - Abdominal pain upper [Unknown]
  - Extrasystoles [Unknown]
  - Feeling abnormal [Unknown]
